FAERS Safety Report 25158476 (Version 3)
Quarter: 2025Q2

REPORT INFORMATION
  Report Type: Spontaneous
  Country: US (occurrence: US)
  Receive Date: 20250404
  Receipt Date: 20250529
  Transmission Date: 20250717
  Serious: No
  Sender: ROCHE
  Company Number: US-ROCHE-10000246158

PATIENT
  Age: 74 Year
  Sex: Female

DRUGS (2)
  1. VABYSMO [Suspect]
     Active Substance: FARICIMAB-SVOA
     Indication: Macular degeneration
     Route: 031
     Dates: start: 202407
  2. VABYSMO [Suspect]
     Active Substance: FARICIMAB-SVOA
     Route: 050
     Dates: start: 20240628

REACTIONS (4)
  - Product complaint [Unknown]
  - No adverse event [Unknown]
  - Wrong technique in device usage process [Unknown]
  - Needle issue [Unknown]

NARRATIVE: CASE EVENT DATE: 20250328
